FAERS Safety Report 21756500 (Version 1)
Quarter: 2022Q4

REPORT INFORMATION
  Report Type: Spontaneous
  Country: FR (occurrence: None)
  Receive Date: 20221220
  Receipt Date: 20221220
  Transmission Date: 20230113
  Serious: Yes (Hospitalization)
  Sender: FDA-Public Use
  Company Number: 2022A399661

PATIENT
  Sex: Female
  Weight: 66 kg

DRUGS (3)
  1. INFLUVAC TETRA [Suspect]
     Active Substance: INFLUENZA VIRUS VACCINE QUADRIVALENT TYPE A+B
     Dosage: 1.0DF ONCE/SINGLE ADMINISTRATION
     Route: 045
     Dates: start: 20221028
  2. TAGRISSO [Suspect]
     Active Substance: OSIMERTINIB
     Indication: Lung adenocarcinoma
     Route: 048
     Dates: start: 20221112, end: 20221121
  3. COMIRNATY [Suspect]
     Active Substance: TOZINAMERAN
     Indication: COVID-19 immunisation
     Dosage: R2
     Route: 065
     Dates: start: 20221028

REACTIONS (1)
  - Myocarditis [Not Recovered/Not Resolved]

NARRATIVE: CASE EVENT DATE: 20221120
